FAERS Safety Report 16394171 (Version 2)
Quarter: 2019Q2

REPORT INFORMATION
  Report Type: Spontaneous
  Country: US (occurrence: US)
  Receive Date: 20190605
  Receipt Date: 20190626
  Transmission Date: 20190711
  Serious: Yes (Other)
  Sender: FDA-Public Use
  Company Number: US-PFIZER INC-2019234158

PATIENT
  Sex: Male
  Weight: 108 kg

DRUGS (1)
  1. VIAGRA [Suspect]
     Active Substance: SILDENAFIL CITRATE
     Indication: ERECTILE DYSFUNCTION
     Dosage: 100 MG, UNK
     Route: 048
     Dates: start: 2016

REACTIONS (5)
  - Therapeutic response unexpected [Unknown]
  - Feeling of relaxation [Unknown]
  - Cataract [Unknown]
  - Irritability [Recovered/Resolved]
  - Visual impairment [Unknown]
